FAERS Safety Report 6169793-X (Version None)
Quarter: 2009Q2

REPORT INFORMATION
  Report Type: 
  Country: None (occurrence: None)
  Receive Date: 20090428
  Receipt Date: 20090421
  Transmission Date: 20091009
  Serious: Yes (Death, Other)
  Sender: FDA-Public Use
  Company Number: US-CELGENEUS-163-21880-09042007

PATIENT

DRUGS (7)
  1. REVLIMID [Suspect]
     Indication: MULTIPLE MYELOMA
     Route: 048
     Dates: start: 20060701
  2. REVLIMID [Suspect]
     Route: 065
  3. DEXAMETHASONE [Suspect]
     Indication: MULTIPLE MYELOMA
     Route: 065
     Dates: start: 20060701
  4. DEXAMETHASONE [Suspect]
     Route: 065
  5. CYCLOPHOSPHAMIDE [Suspect]
     Indication: MULTIPLE MYELOMA
     Route: 065
     Dates: start: 20060701
  6. CYCLOPHOSPHAMIDE [Suspect]
     Route: 065
  7. ASPIRIN [Concomitant]
     Indication: THROMBOSIS PROPHYLAXIS
     Route: 065

REACTIONS (9)
  - BONE MARROW FAILURE [None]
  - CONFUSIONAL STATE [None]
  - CYSTITIS [None]
  - DEPRESSION [None]
  - DIARRHOEA [None]
  - HAEMORRHAGE INTRACRANIAL [None]
  - NEUROPATHY PERIPHERAL [None]
  - SEPSIS [None]
  - THROMBOSIS [None]
